FAERS Safety Report 7086215 (Version 2)
Quarter: 2018Q1

REPORT INFORMATION
  Report Type: Spontaneous
  Country: DE (occurrence: DE)
  Receive Date: 20090820
  Receipt Date: 20180228
  Transmission Date: 20180509
  Serious: Yes (Other)
  Sender: FDA-Public Use
  Company Number: DE-ASTRAZENECA-2009SE07418

PATIENT
  Age: 85 Year
  Sex: Female

DRUGS (10)
  1. FUROSEMIDE. [Concomitant]
     Active Substance: FUROSEMIDE
  2. ACETYLSALICYLIC ACID [Concomitant]
     Active Substance: ASPIRIN
     Indication: PROPHYLAXIS
  3. NIFEDIPINE. [Concomitant]
     Active Substance: NIFEDIPINE
  4. TORSEMIDE. [Concomitant]
     Active Substance: TORSEMIDE
  5. LEVOTHYROXINE. [Concomitant]
     Active Substance: LEVOTHYROXINE
  6. QUETIAPINE. [Interacting]
     Active Substance: QUETIAPINE
     Dosage: MAINTENANCE DOSAGE OF 450 MG/D
     Route: 065
  7. VALPROIC ACID. [Interacting]
     Active Substance: VALPROIC ACID
     Route: 065
  8. PIPAMPERONE [Interacting]
     Active Substance: PIPAMPERONE
     Route: 065
  9. PIPAMPERONE [Interacting]
     Active Substance: PIPAMPERONE
     Route: 065
  10. QUETIAPINE. [Suspect]
     Active Substance: QUETIAPINE
     Route: 065

REACTIONS (7)
  - Blood creatine phosphokinase increased [Recovered/Resolved]
  - Muscular weakness [Recovered/Resolved]
  - Myalgia [Recovered/Resolved]
  - Drug interaction [Recovered/Resolved]
  - Drug clearance decreased [Recovered/Resolved]
  - Myoglobin blood increased [Recovered/Resolved]
  - Myopathy [Recovered/Resolved]
